FAERS Safety Report 10025733 (Version 2)
Quarter: 2014Q4

REPORT INFORMATION
  Report Type: Report from Study
  Country: US (occurrence: US)
  Receive Date: 20140320
  Receipt Date: 20141021
  Transmission Date: 20150528
  Serious: Yes (Hospitalization)
  Sender: FDA-Public Use
  Company Number: US-US-EMD SERONO, INC.-7276547

PATIENT
  Age: 56 Year
  Sex: Female

DRUGS (4)
  1. REBIF [Suspect]
     Active Substance: INTERFERON BETA-1A
     Route: 058
     Dates: start: 201401, end: 201401
  2. REBIF [Suspect]
     Active Substance: INTERFERON BETA-1A
     Indication: MULTIPLE SCLEROSIS
     Route: 058
     Dates: start: 20130530
  3. HYDROCHLOROTHIAZID [Concomitant]
     Active Substance: HYDROCHLOROTHIAZIDE
     Indication: HYPERTENSION
  4. AMITRIPTYLINE [Concomitant]
     Active Substance: AMITRIPTYLINE
     Indication: SLEEP DISORDER

REACTIONS (8)
  - Blood pressure decreased [Recovered/Resolved]
  - Nerve compression [Not Recovered/Not Resolved]
  - Injection site reaction [Not Recovered/Not Resolved]
  - Platelet count decreased [Recovered/Resolved]
  - Paraesthesia [Not Recovered/Not Resolved]
  - Cellulitis [Recovered/Resolved]
  - Animal scratch [Unknown]
  - Hypoaesthesia [Not Recovered/Not Resolved]

NARRATIVE: CASE EVENT DATE: 201401
